FAERS Safety Report 7203160-2 (Version None)
Quarter: 2010Q4

REPORT INFORMATION
  Report Type: 
  Country: None (occurrence: None)
  Receive Date: 20101229
  Receipt Date: 20101217
  Transmission Date: 20110411
  Serious: Yes (Hospitalization)
  Sender: FDA-Public Use
  Company Number: JP-MYLANLABS-2010S1023461

PATIENT
  Age: 26 Year
  Sex: Female

DRUGS (4)
  1. PHENYTOIN [Suspect]
     Indication: CONVULSION
     Route: 042
  2. PHENYTOIN [Suspect]
     Route: 048
  3. ACYCLOVIR [Concomitant]
     Route: 065
  4. MEROPENEM [Concomitant]
     Route: 065

REACTIONS (3)
  - APLASIA PURE RED CELL [None]
  - DRUG EXPOSURE DURING PREGNANCY [None]
  - NORMAL NEWBORN [None]
